FAERS Safety Report 18568051 (Version 1)
Quarter: 2020Q4

REPORT INFORMATION
  Report Type: Spontaneous
  Country: US (occurrence: US)
  Receive Date: 20201202
  Receipt Date: 20201202
  Transmission Date: 20210114
  Serious: No
  Sender: FDA-Public Use
  Company Number: US-ALLERGAN-1946525US

PATIENT
  Sex: Female

DRUGS (1)
  1. MEMANTINE HCL UNK [Suspect]
     Active Substance: MEMANTINE HYDROCHLORIDE
     Indication: MEMORY IMPAIRMENT

REACTIONS (2)
  - Visual impairment [Unknown]
  - Lacrimation increased [Unknown]
